FAERS Safety Report 5629992-X (Version None)
Quarter: 2008Q1

REPORT INFORMATION
  Report Type: 
  Country: None (occurrence: None)
  Receive Date: 20080213
  Receipt Date: 20080128
  Transmission Date: 20080703
  Serious: Yes (Death)
  Sender: FDA-Public Use
  Company Number: 2007JP004843

PATIENT
  Age: 77 Year
  Sex: Male
  Weight: 65 kg

DRUGS (12)
  1. TACROLIMUS [Suspect]
     Indication: RHEUMATOID ARTHRITIS
     Dosage: 1.5 MG, UID/QD, ORAL; 2 MG, UID/QD, ORAL; 3 MG, UID/QD, ORAL
     Route: 048
     Dates: start: 20060530, end: 20060601
  2. TACROLIMUS [Suspect]
     Indication: RHEUMATOID ARTHRITIS
     Dosage: 1.5 MG, UID/QD, ORAL; 2 MG, UID/QD, ORAL; 3 MG, UID/QD, ORAL
     Route: 048
     Dates: start: 20060602, end: 20060608
  3. TACROLIMUS [Suspect]
     Indication: RHEUMATOID ARTHRITIS
     Dosage: 1.5 MG, UID/QD, ORAL; 2 MG, UID/QD, ORAL; 3 MG, UID/QD, ORAL
     Route: 048
     Dates: start: 20060609, end: 20060701
  4. PREDNISOLONE [Concomitant]
  5. PREDNISOLONE [Concomitant]
  6. SIGMART (NICORANDIL) TABLET [Concomitant]
  7. BAYASPIRIN TABLET [Concomitant]
  8. CARVEDILOL [Concomitant]
  9. BLOPRESS (CANDESARTAN CILEXETIL) TABLET [Concomitant]
  10. MAGLAX (MAGNESIUM OXIDE) TABLET [Concomitant]
  11. PARIET (RABEPRAZOLE SODIUM) TABLET [Concomitant]
  12. METHOTREXATE FORMULATION UNKNOWN [Concomitant]

REACTIONS (13)
  - ARRHYTHMIA [None]
  - ASPIRATION BONE MARROW ABNORMAL [None]
  - BLOOD PRESSURE DECREASED [None]
  - BRADYCARDIA [None]
  - CONDITION AGGRAVATED [None]
  - DISSEMINATED INTRAVASCULAR COAGULATION [None]
  - HYPERKALAEMIA [None]
  - INTERSTITIAL LUNG DISEASE [None]
  - PANCYTOPENIA [None]
  - PLATELET COUNT DECREASED [None]
  - PROTHROMBIN TIME PROLONGED [None]
  - RESPIRATORY ACIDOSIS [None]
  - WHITE BLOOD CELL COUNT INCREASED [None]
